FAERS Safety Report 24147419 (Version 1)
Quarter: 2024Q3

REPORT INFORMATION
  Report Type: Spontaneous
  Country: GB (occurrence: GB)
  Receive Date: 20240729
  Receipt Date: 20240729
  Transmission Date: 20241017
  Serious: Yes (Hospitalization)
  Sender: MYLAN
  Company Number: GB-MYLANLABS-2024M1069013

PATIENT
  Sex: Male

DRUGS (1)
  1. CLOZARIL [Suspect]
     Active Substance: CLOZAPINE
     Indication: Schizophrenia
     Dosage: UNK
     Route: 048
     Dates: start: 20240628

REACTIONS (8)
  - Hospitalisation [Unknown]
  - Weight decreased [Unknown]
  - Chills [Unknown]
  - Abdominal discomfort [Unknown]
  - Hypertension [Unknown]
  - Heart rate increased [Unknown]
  - Vomiting [Unknown]
  - Pyrexia [Unknown]
